FAERS Safety Report 13644657 (Version 1)
Quarter: 2017Q2

REPORT INFORMATION
  Report Type: Spontaneous
  Country: US (occurrence: US)
  Receive Date: 20170612
  Receipt Date: 20170612
  Transmission Date: 20170830
  Serious: Yes (Hospitalization)
  Sender: FDA-Public Use
  Company Number: US-ROCHE-1319357

PATIENT
  Sex: Female

DRUGS (7)
  1. LORTAB [Concomitant]
     Active Substance: ACETAMINOPHEN\HYDROCODONE BITARTRATE
  2. MAXZIDE [Concomitant]
     Active Substance: HYDROCHLOROTHIAZIDE\TRIAMTERENE
  3. OXYCONTIN [Concomitant]
     Active Substance: OXYCODONE HYDROCHLORIDE
  4. XELODA [Suspect]
     Active Substance: CAPECITABINE
     Indication: BREAST CANCER
     Dosage: 14 DAYS ON AND 7 DAYS OFF
     Route: 048
     Dates: start: 20131003
  5. PROTONIX (OMEPRAZOLE) [Concomitant]
  6. XANAX [Concomitant]
     Active Substance: ALPRAZOLAM
  7. ZANTAC [Concomitant]
     Active Substance: RANITIDINE HYDROCHLORIDE

REACTIONS (3)
  - Abdominal pain upper [Unknown]
  - Myocardial infarction [Unknown]
  - Nausea [Unknown]
